FAERS Safety Report 6708665-6 (Version None)
Quarter: 2010Q2

REPORT INFORMATION
  Report Type: 
  Country: None (occurrence: None)
  Receive Date: 20100503
  Receipt Date: 20100421
  Transmission Date: 20101027
  Serious: Yes (Congenital Anomaly)
  Sender: FDA-Public Use
  Company Number: JP-ALLERGAN-1005548US

PATIENT

DRUGS (3)
  1. ALESION TABLET [Suspect]
     Indication: DRUG EXPOSURE DURING PREGNANCY
     Dosage: 20 MG, UNK
     Route: 064
  2. PAXIL [Concomitant]
     Dosage: 10 MG, UNK
     Route: 064
  3. LORAZEPAM [Concomitant]
     Route: 064

REACTIONS (1)
  - CRYPTOPHTHALMOS [None]
